FAERS Safety Report 18286725 (Version 2)
Quarter: 2021Q4

REPORT INFORMATION
  Report Type: Spontaneous
  Country: JP (occurrence: JP)
  Receive Date: 20200921
  Receipt Date: 20211122
  Transmission Date: 20220303
  Serious: Yes (Other)
  Sender: FDA-Public Use
  Company Number: JP-BOEHRINGERINGELHEIM-2020-BI-047577

PATIENT
  Age: 67 Year
  Sex: Male

DRUGS (4)
  1. AFATINIB [Suspect]
     Active Substance: AFATINIB
     Indication: Lung adenocarcinoma
     Route: 065
  2. AFATINIB [Suspect]
     Active Substance: AFATINIB
     Route: 065
  3. VINORELBINE [Concomitant]
     Active Substance: VINORELBINE TARTRATE
     Indication: Lung adenocarcinoma
     Route: 065
  4. CISPLATIN [Concomitant]
     Active Substance: CISPLATIN
     Indication: Lung adenocarcinoma
     Route: 065

REACTIONS (5)
  - Peritonitis [Unknown]
  - Metastases to spine [Unknown]
  - Iatrogenic metastasis [Unknown]
  - Therapy partial responder [Unknown]
  - Diarrhoea [Recovered/Resolved]
